FAERS Safety Report 7516962-X (Version None)
Quarter: 2011Q2

REPORT INFORMATION
  Report Type: 
  Country: None (occurrence: None)
  Receive Date: 20110601
  Receipt Date: 20110519
  Transmission Date: 20111010
  Serious: Yes (Other)
  Sender: FDA-Public Use
  Company Number: NL-AMGEN-NLDSP2011024872

PATIENT
  Age: 70 Year
  Sex: Female

DRUGS (3)
  1. MTX                                /00113801/ [Concomitant]
     Dosage: UNK
  2. FOLIC ACID [Concomitant]
     Dosage: UNK
  3. ENBREL [Suspect]
     Indication: RHEUMATOID ARTHRITIS
     Dosage: 50 MG, WEEKLY
     Dates: start: 20101004

REACTIONS (4)
  - INJURY CORNEAL [None]
  - JOINT WARMTH [None]
  - ARTHRALGIA [None]
  - INFLAMMATION [None]
